FAERS Safety Report 8764708 (Version 1)
Quarter: 2012Q4

REPORT INFORMATION
  Report Type: 
  Country: US (occurrence: US)
  Receive Date: 20120831
  Receipt Date: 20120831
  Transmission Date: 20130627
  Serious: Yes (Other)
  Sender: FDA-Public Use
  Company Number: US-PFIZER INC-2012211871

PATIENT
  Age: 85 Year
  Sex: Female
  Weight: 57.6 kg

DRUGS (2)
  1. SKELAXIN [Suspect]
     Indication: PAIN
     Dosage: 400 mg, 3x/day
     Route: 048
  2. SKELAXIN [Suspect]
     Indication: MUSCLE SPASMS

REACTIONS (8)
  - Inappropriate antidiuretic hormone secretion [Not Recovered/Not Resolved]
  - Blood chloride decreased [Unknown]
  - Blood glucose increased [Unknown]
  - Haematocrit decreased [Unknown]
  - Blood osmolarity decreased [Unknown]
  - Urine osmolarity decreased [Unknown]
  - Blood sodium decreased [Unknown]
  - Renin increased [Unknown]
